FAERS Safety Report 25997584 (Version 1)
Quarter: 2025Q4

REPORT INFORMATION
  Report Type: Spontaneous
  Country: CN (occurrence: CN)
  Receive Date: 20251104
  Receipt Date: 20251104
  Transmission Date: 20260117
  Serious: Yes (Other)
  Sender: AMGEN
  Company Number: CN-AMGEN-CHNSP2025215560

PATIENT

DRUGS (3)
  1. CARFILZOMIB [Suspect]
     Active Substance: CARFILZOMIB
     Indication: Plasma cell myeloma
     Dosage: UNK
     Route: 065
  2. DEXAMETHASONE [Concomitant]
     Active Substance: DEXAMETHASONE
     Indication: Plasma cell myeloma
     Dosage: 16 MILLIGRAM/KILOGRAM, WITH AN INITIAL PHASE (WEEKS 1-8) OF WEEKLY DOSING, FOLLOWED BY BIWEEKLY DOSI
     Route: 040
  3. DARATUMUMAB [Concomitant]
     Active Substance: DARATUMUMAB
     Indication: Plasma cell myeloma
     Dosage: UNK
     Route: 065

REACTIONS (11)
  - Plasma cell myeloma [Unknown]
  - Neutrophil count decreased [Unknown]
  - Platelet count decreased [Unknown]
  - Lymphocyte count decreased [Unknown]
  - Anaemia [Unknown]
  - Pneumonia [Unknown]
  - Gastrointestinal infection [Unknown]
  - Herpes zoster [Unknown]
  - Infusion related reaction [Unknown]
  - Therapy partial responder [Unknown]
  - Therapeutic product effect incomplete [Unknown]
